FAERS Safety Report 6433176-5 (Version None)
Quarter: 2009Q4

REPORT INFORMATION
  Report Type: 
  Country: None (occurrence: None)
  Receive Date: 20091109
  Receipt Date: 20091028
  Transmission Date: 20100525
  Serious: Yes (Disabling)
  Sender: FDA-Public Use
  Company Number: PHHY2009BR47002

PATIENT
  Age: 58 Year
  Sex: Male

DRUGS (4)
  1. ZOMETA [Suspect]
     Indication: MUSCULOSKELETAL PAIN
  2. ZOMETA [Suspect]
     Indication: VENOUS INSUFFICIENCY
  3. ANTIHYPERTENSIVES [Concomitant]
  4. ANTI-INFLAMMATORIES [Concomitant]

REACTIONS (2)
  - IIIRD NERVE PARALYSIS [None]
  - OPHTHALMOPLEGIA [None]
